FAERS Safety Report 7307671-0 (Version None)
Quarter: 2011Q1

REPORT INFORMATION
  Report Type: 
  Country: None (occurrence: None)
  Receive Date: 20110223
  Receipt Date: 20110214
  Transmission Date: 20110831
  Serious: Yes (Other)
  Sender: FDA-Public Use
  Company Number: US-SANOFI-AVENTIS-2011SA009941

PATIENT
  Age: 71 Year
  Sex: Female

DRUGS (11)
  1. MULTAQ [Suspect]
     Indication: ATRIAL FIBRILLATION
     Route: 048
     Dates: start: 20100901
  2. ASPIRIN [Concomitant]
  3. CALCIUM [Concomitant]
  4. WARFARIN SODIUM [Concomitant]
  5. MULTI-VITAMINS [Concomitant]
  6. NIASPAN [Concomitant]
  7. LASIX [Concomitant]
  8. ENALAPRIL MALEATE [Concomitant]
  9. PROPRANOLOL [Concomitant]
  10. FISH OIL [Concomitant]
  11. CLONAZEPAM [Concomitant]

REACTIONS (1)
  - HYPERTHYROIDISM [None]
